FAERS Safety Report 9267759 (Version 3)
Quarter: 2013Q3

REPORT INFORMATION
  Report Type: Spontaneous
  Country: DE (occurrence: DE)
  Receive Date: 20130502
  Receipt Date: 20130703
  Transmission Date: 20140515
  Serious: Yes (Hospitalization, Other)
  Sender: FDA-Public Use
  Company Number: DE-ELI_LILLY_AND_COMPANY-DE201304008286

PATIENT
  Sex: Male
  Weight: 75 kg

DRUGS (4)
  1. EFIENT [Suspect]
     Indication: ACUTE MYOCARDIAL INFARCTION
     Dosage: 60 MG, SINGLE
     Route: 048
     Dates: start: 20100930, end: 20100930
  2. EFIENT [Suspect]
     Dosage: 10 MG, QD
     Route: 048
     Dates: end: 20111001
  3. ACETYLSALICYLIC ACID [Concomitant]
     Dosage: UNK, SINGLE
  4. ACETYLSALICYLIC ACID [Concomitant]
     Dosage: 100 MG, QD

REACTIONS (5)
  - Bladder tamponade [Unknown]
  - Urethral haemorrhage [Recovered/Resolved]
  - Benign prostatic hyperplasia [Unknown]
  - Haemoglobin decreased [Recovered/Resolved]
  - Urinary tract infection [Unknown]
